FAERS Safety Report 6876356-7 (Version None)
Quarter: 2010Q3

REPORT INFORMATION
  Report Type: 
  Country: None (occurrence: None)
  Receive Date: 20100727
  Receipt Date: 20070702
  Transmission Date: 20110219
  Serious: No
  Sender: FDA-Public Use
  Company Number: US-PFIZER INC-2007010096

PATIENT
  Sex: Male

DRUGS (4)
  1. CELEBREX [Suspect]
     Indication: ARTHRITIS
     Dates: start: 20000401, end: 20001201
  2. CELEBREX [Suspect]
     Indication: OSTEOARTHRITIS
  3. BEXTRA [Suspect]
     Indication: OSTEOARTHRITIS
     Dates: start: 20020801
  4. VIOXX [Suspect]
     Indication: OSTEOARTHRITIS
     Route: 048
     Dates: start: 20010101, end: 20020701

REACTIONS (1)
  - ANXIETY [None]
